FAERS Safety Report 6307532-X (Version None)
Quarter: 2009Q3

REPORT INFORMATION
  Report Type: 
  Country: None (occurrence: None)
  Receive Date: 20090813
  Receipt Date: 20090810
  Transmission Date: 20100115
  Serious: Yes (Hospitalization, Other)
  Sender: FDA-Public Use
  Company Number: US-TEVA-205461USA

PATIENT
  Age: 54 Year
  Sex: Male

DRUGS (4)
  1. MYCOPHENOLATE MOFETIL [Suspect]
     Indication: DEMYELINATING POLYNEUROPATHY
  2. PREDNISONE [Suspect]
     Indication: DEMYELINATING POLYNEUROPATHY
  3. IMMUNE GLOBULIN INFUSION (NOS) [Suspect]
     Indication: DEMYELINATING POLYNEUROPATHY
  4. WARFARIN SODIUM [Concomitant]
     Indication: PROTEIN S DEFICIENCY

REACTIONS (3)
  - BACTERIAL INFECTION [None]
  - CALCIPHYLAXIS [None]
  - FUNGAL INFECTION [None]
